FAERS Safety Report 9787708 (Version 1)
Quarter: 2013Q4

REPORT INFORMATION
  Report Type: Spontaneous
  Country: CH (occurrence: CH)
  Receive Date: 20131230
  Receipt Date: 20131230
  Transmission Date: 20140711
  Serious: Yes (Hospitalization)
  Sender: FDA-Public Use
  Company Number: CH-JNJFOC-20131215476

PATIENT
  Age: 92 Year
  Sex: 0

DRUGS (12)
  1. XARELTO [Suspect]
     Indication: CEREBROVASCULAR ACCIDENT PROPHYLAXIS
     Route: 048
     Dates: start: 20131013
  2. XARELTO [Suspect]
     Indication: CEREBROVASCULAR ACCIDENT PROPHYLAXIS
     Route: 048
     Dates: start: 201310
  3. XARELTO [Suspect]
     Indication: CEREBROVASCULAR ACCIDENT PROPHYLAXIS
     Route: 048
     Dates: start: 201208, end: 201211
  4. XARELTO [Suspect]
     Indication: CEREBROVASCULAR ACCIDENT PROPHYLAXIS
     Route: 048
     Dates: start: 201211
  5. XARELTO [Suspect]
     Indication: ATRIAL FIBRILLATION
     Route: 048
     Dates: start: 201310
  6. XARELTO [Suspect]
     Indication: ATRIAL FIBRILLATION
     Route: 048
     Dates: start: 201211
  7. XARELTO [Suspect]
     Indication: ATRIAL FIBRILLATION
     Route: 048
     Dates: start: 201208, end: 201211
  8. XARELTO [Suspect]
     Indication: ATRIAL FIBRILLATION
     Route: 048
     Dates: start: 20131013
  9. CIPROXIN [Suspect]
     Indication: URINARY TRACT INFECTION
     Route: 048
     Dates: start: 20131008, end: 20131014
  10. TOREM [Concomitant]
     Route: 065
  11. ANXIOLIT [Concomitant]
     Route: 065
  12. BILOL [Concomitant]
     Route: 048

REACTIONS (4)
  - Cerebrovascular accident [Recovering/Resolving]
  - Prescribed underdose [Recovered/Resolved]
  - Epilepsy [Recovered/Resolved]
  - Drug ineffective [Recovered/Resolved]
